FAERS Safety Report 25452695 (Version 3)
Quarter: 2025Q3

REPORT INFORMATION
  Report Type: Spontaneous
  Country: EU (occurrence: EU)
  Receive Date: 20250618
  Receipt Date: 20250707
  Transmission Date: 20251021
  Serious: Yes (Life-Threatening, Hospitalization)
  Sender: MERCK SHARP & DOHME LLC
  Company Number: None

PATIENT
  Age: 17 Year
  Sex: Male
  Weight: 76 kg

DRUGS (8)
  1. METFORMIN\SITAGLIPTIN [Suspect]
     Active Substance: METFORMIN\SITAGLIPTIN
     Route: 048
  2. DICLOFENAC SODIUM [Suspect]
     Active Substance: DICLOFENAC SODIUM
     Route: 048
  3. PANTOPRAZOLE [Suspect]
     Active Substance: PANTOPRAZOLE
     Route: 048
  4. AMLODIPINE\PERINDOPRIL [Suspect]
     Active Substance: AMLODIPINE\PERINDOPRIL
     Route: 048
  5. ACETAMINOPHEN\ASCORBIC ACID\PHENIRAMINE MALEATE [Suspect]
     Active Substance: ACETAMINOPHEN\ASCORBIC ACID\PHENIRAMINE MALEATE
     Route: 048
  6. KETOPROFEN [Suspect]
     Active Substance: KETOPROFEN
     Route: 048
  7. ACETAMINOPHEN [Suspect]
     Active Substance: ACETAMINOPHEN
     Route: 048
  8. DESLORATADINE [Suspect]
     Active Substance: DESLORATADINE
     Route: 048

REACTIONS (14)
  - Hyperkalaemia [Unknown]
  - Hyperleukocytosis [Unknown]
  - Prothrombin time abnormal [Unknown]
  - Intentional product use issue [Unknown]
  - Intentional overdose [Unknown]
  - Acute kidney injury [Unknown]
  - Vomiting [Unknown]
  - Abdominal pain [Unknown]
  - Hypotension [Unknown]
  - Heart rate abnormal [Unknown]
  - Livedo reticularis [Unknown]
  - Blood gases abnormal [Unknown]
  - Blood lactic acid abnormal [Unknown]
  - Hyperkinetic heart syndrome [Unknown]
